FAERS Safety Report 5022120-3 (Version None)
Quarter: 2006Q2

REPORT INFORMATION
  Report Type: 
  Country: None (occurrence: None)
  Receive Date: 20060609
  Receipt Date: 20060605
  Transmission Date: 20061013
  Serious: Yes (Other)
  Sender: FDA-Public Use
  Company Number: JP-AVENTIS-200611729JP

PATIENT

DRUGS (1)
  1. LASIX [Suspect]

REACTIONS (2)
  - ELECTROLYTE IMBALANCE [None]
  - PSEUDO-BARTTER SYNDROME [None]
